FAERS Safety Report 8220962-4 (Version None)
Quarter: 2012Q1

REPORT INFORMATION
  Report Type: 
  Country: None (occurrence: None)
  Receive Date: 20120320
  Receipt Date: 20120309
  Transmission Date: 20120608
  Serious: Yes (Other)
  Sender: FDA-Public Use
  Company Number: US-RB-035868-12

PATIENT
  Age: 63 Year
  Sex: Male

DRUGS (3)
  1. MUCINEX [Suspect]
     Route: 048
  2. MUCINEX [Suspect]
     Indication: DRY THROAT
     Route: 048
  3. MUCINEX [Suspect]
     Indication: BRONCHIAL SECRETION RETENTION
     Route: 048

REACTIONS (3)
  - INCORRECT DRUG ADMINISTRATION DURATION [None]
  - HYPOTENSION [None]
  - HEART RATE INCREASED [None]
